FAERS Safety Report 16127708 (Version 1)
Quarter: 2019Q2

REPORT INFORMATION
  Report Type: Spontaneous
  Country: US (occurrence: US)
  Receive Date: 20190327
  Receipt Date: 20190327
  Transmission Date: 20190711
  Serious: Yes (Hospitalization, Disabling)
  Sender: FDA-Public Use
  Company Number: None

PATIENT
  Age: 43 Year
  Sex: Female
  Weight: 69.4 kg

DRUGS (1)
  1. MIRENA [Suspect]
     Active Substance: LEVONORGESTREL

REACTIONS (6)
  - Monoparesis [None]
  - Loss of personal independence in daily activities [None]
  - Impaired work ability [None]
  - Gait disturbance [None]
  - Complication associated with device [None]
  - Paresis [None]

NARRATIVE: CASE EVENT DATE: 20180501
